FAERS Safety Report 15942344 (Version 5)
Quarter: 2020Q3

REPORT INFORMATION
  Report Type: Report from Study
  Country: US (occurrence: US)
  Receive Date: 20190209
  Receipt Date: 20190520
  Transmission Date: 20201105
  Serious: Yes (Death, Hospitalization)
  Sender: FDA-Public Use
  Company Number: US-ROCHE-2259418

PATIENT
  Age: 67 Year
  Sex: Male
  Weight: 89.1 kg

DRUGS (22)
  1. GEMCITABINE. [Suspect]
     Active Substance: GEMCITABINE
     Indication: PANCREATIC CARCINOMA METASTATIC
     Dosage: MOST RECENT DOSE 2040 MG OF GEMCITABINE ADMINISTERED ON  23/JAN/2019
     Route: 042
     Dates: start: 20190123
  2. OXYCODONE [Concomitant]
     Active Substance: OXYCODONE
     Indication: ABDOMINAL PAIN
     Route: 048
     Dates: start: 201812
  3. LACTULOSE. [Concomitant]
     Active Substance: LACTULOSE
     Indication: CONSTIPATION
     Route: 048
     Dates: start: 201812, end: 20190202
  4. POLYETHYLENE GLYCOL 3350. [Concomitant]
     Active Substance: POLYETHYLENE GLYCOL 3350
     Indication: CONSTIPATION
     Route: 048
     Dates: start: 20190204
  5. GRANISETRON HCL [Concomitant]
     Indication: PREMEDICATION
     Route: 042
     Dates: start: 20190123, end: 20190123
  6. ACETAMINOPHEN. [Concomitant]
     Active Substance: ACETAMINOPHEN
     Indication: PREMEDICATION
     Route: 048
     Dates: start: 20190123, end: 20190123
  7. RO7009789 (CD40 AGONIST) [Suspect]
     Active Substance: SELICRELUMAB
     Indication: PANCREATIC CARCINOMA METASTATIC
     Dosage: MOST RECENT DOSE 16 MG OF SELICRELUMAB ADMINISTERED ON  23/JAN/2019?ON DAY 1 OF CYCLES 1?4 AND EVERY
     Route: 058
     Dates: start: 20190123
  8. ATEZOLIZUMAB. [Suspect]
     Active Substance: ATEZOLIZUMAB
     Indication: PANCREATIC CARCINOMA METASTATIC
     Dosage: MOST RECENT DOSE OF ATEZOLIZUMAB RECEIVED ON 23/JAN/2019
     Route: 042
     Dates: start: 20190123
  9. METFORMIN [Concomitant]
     Active Substance: METFORMIN HYDROCHLORIDE
     Indication: DIABETES MELLITUS
     Route: 048
     Dates: start: 20180823
  10. DICLOFENAC [Concomitant]
     Active Substance: DICLOFENAC
     Indication: ARTHRITIS
     Route: 048
     Dates: start: 2013
  11. HEPARIN [Concomitant]
     Active Substance: HEPARIN SODIUM
     Indication: PROPHYLAXIS
     Dosage: 5000 UNIT
     Route: 058
     Dates: start: 20190201, end: 20190202
  12. HYDROMORPHONE [Concomitant]
     Active Substance: HYDROMORPHONE
     Indication: PAIN
     Route: 042
     Dates: start: 20190204
  13. SODIUM CHLORIDE. [Concomitant]
     Active Substance: SODIUM CHLORIDE
     Indication: DEHYDRATION
     Route: 042
     Dates: start: 20190131, end: 20190203
  14. PACLITAXEL ALBUMIN [Suspect]
     Active Substance: PACLITAXEL
     Indication: PANCREATIC CARCINOMA METASTATIC
     Dosage: MOST RECENT DOSE 255 MG OF NAB?PACLITAXEL ADMINISTERED ON  23/JAN/2019
     Route: 042
     Dates: start: 20190123
  15. ENOXAPARIN [Concomitant]
     Active Substance: ENOXAPARIN
     Indication: PROPHYLAXIS
     Route: 058
     Dates: start: 20190131, end: 20190131
  16. SENNA [SENNA ALEXANDRINA] [Concomitant]
     Active Substance: SENNA LEAF
     Indication: CONSTIPATION
     Route: 048
     Dates: start: 20190203
  17. DIPHENHYDRAMINE HCL [Concomitant]
     Active Substance: DIPHENHYDRAMINE HYDROCHLORIDE
     Indication: PREMEDICATION
     Route: 042
     Dates: start: 20190123, end: 20190123
  18. PROCHLORPERAZINE. [Concomitant]
     Active Substance: PROCHLORPERAZINE
     Indication: NAUSEA
     Route: 065
     Dates: start: 20190123
  19. OXYCODONE [Concomitant]
     Active Substance: OXYCODONE
     Indication: BACK PAIN
     Route: 048
     Dates: start: 20190131
  20. PANCRELIPASE. [Concomitant]
     Active Substance: PANCRELIPASE
     Route: 048
     Dates: start: 20190131
  21. PANTOPRAZOLE [Concomitant]
     Active Substance: PANTOPRAZOLE
     Indication: PROPHYLAXIS
     Route: 048
     Dates: start: 20190201
  22. ZOFRAN [Concomitant]
     Active Substance: ONDANSETRON HYDROCHLORIDE
     Indication: NAUSEA
     Route: 048
     Dates: start: 20190123

REACTIONS (1)
  - Acute kidney injury [Fatal]

NARRATIVE: CASE EVENT DATE: 20190131
